FAERS Safety Report 7844626-1 (Version None)
Quarter: 2011Q4

REPORT INFORMATION
  Report Type: 
  Country: None (occurrence: None)
  Receive Date: 20111014
  Receipt Date: 20111007
  Transmission Date: 20120403
  Serious: Yes (Disabling)
  Sender: FDA-Public Use
  Company Number: 2011SP047702

PATIENT
  Age: 72 Year
  Sex: Male

DRUGS (2)
  1. REMERON [Suspect]
     Indication: PRODUCT USED FOR UNKNOWN INDICATION
     Dosage: 15 MG;PO
     Route: 048
     Dates: start: 20110101, end: 20110101
  2. TOPROL-XL [Concomitant]

REACTIONS (2)
  - CONDITION AGGRAVATED [None]
  - PORPHYRIA NON-ACUTE [None]
